FAERS Safety Report 5661775-7 (Version None)
Quarter: 2008Q1

REPORT INFORMATION
  Report Type: 
  Country: None (occurrence: None)
  Receive Date: 20080312
  Receipt Date: 20080303
  Transmission Date: 20080703
  Serious: Yes (Death)
  Sender: FDA-Public Use
  Company Number: CA-JNJFOC-20041202907

PATIENT
  Age: 46 Year
  Sex: Male

DRUGS (4)
  1. DURAGESIC-100 [Suspect]
     Indication: NEURALGIA
     Route: 048
  2. BENZODIAZEPINE [Concomitant]
     Route: 065
  3. MS CONTIN [Concomitant]
     Route: 065
  4. ALPRAZOLAM [Concomitant]
     Route: 065

REACTIONS (4)
  - DRUG TOXICITY [None]
  - DUODENAL ULCER PERFORATION [None]
  - GASTROINTESTINAL HAEMORRHAGE [None]
  - INTENTIONAL DRUG MISUSE [None]
